FAERS Safety Report 9161817 (Version 3)
Quarter: 2013Q2

REPORT INFORMATION
  Report Type: Spontaneous
  Country: US (occurrence: US)
  Receive Date: 20130314
  Receipt Date: 20130411
  Transmission Date: 20140414
  Serious: Yes (Other)
  Sender: FDA-Public Use
  Company Number: US-BIOGENIDEC-2013BI022791

PATIENT
  Age: 55 Year
  Sex: Female

DRUGS (2)
  1. TYSABRI [Suspect]
     Indication: MULTIPLE SCLEROSIS
     Route: 042
  2. TYSABRI [Suspect]
     Indication: MULTIPLE SCLEROSIS
     Route: 042
     Dates: start: 20130129, end: 20130226

REACTIONS (2)
  - Anaphylactic reaction [Recovered/Resolved]
  - Drug specific antibody present [Unknown]
